FAERS Safety Report 17708324 (Version 4)
Quarter: 2021Q3

REPORT INFORMATION
  Report Type: Report from Study
  Country: BR (occurrence: BR)
  Receive Date: 20200426
  Receipt Date: 20210910
  Transmission Date: 20211014
  Serious: Yes (Hospitalization, Other)
  Sender: FDA-Public Use
  Company Number: NVSC2020BR110581

PATIENT
  Age: 47 Year
  Sex: Female

DRUGS (7)
  1. COSENTYX [Suspect]
     Active Substance: SECUKINUMAB
     Indication: PSORIASIS
     Dosage: UNK
     Route: 065
     Dates: start: 20191217
  2. COSENTYX [Suspect]
     Active Substance: SECUKINUMAB
     Dosage: 300 MG, UNKNOWN
     Route: 065
  3. OMEPRAZOLE. [Concomitant]
     Active Substance: OMEPRAZOLE
     Indication: PRODUCT USED FOR UNKNOWN INDICATION
     Route: 065
  4. COSENTYX [Suspect]
     Active Substance: SECUKINUMAB
     Dosage: 300 MG, UNKNOWN
     Route: 065
     Dates: start: 20200815
  5. COSENTYX [Suspect]
     Active Substance: SECUKINUMAB
     Dosage: UNK
     Route: 065
     Dates: start: 20210901
  6. PANTOPRAZOLE [Suspect]
     Active Substance: PANTOPRAZOLE
     Indication: PRODUCT USED FOR UNKNOWN INDICATION
     Dosage: UNK
     Route: 065
  7. AZITHROMYCIN ANHYDROUS. [Suspect]
     Active Substance: AZITHROMYCIN ANHYDROUS
     Indication: CORONAVIRUS INFECTION
     Dosage: UNK
     Route: 065
     Dates: start: 202004

REACTIONS (30)
  - Vomiting [Unknown]
  - Abdominal distension [Unknown]
  - Dysplasia [Unknown]
  - Pain [Recovered/Resolved]
  - Blood pressure abnormal [Unknown]
  - Oxygen saturation decreased [Recovered/Resolved]
  - Ageusia [Recovered/Resolved]
  - Headache [Recovered/Resolved]
  - Traumatic lung injury [Unknown]
  - Back pain [Recovering/Resolving]
  - Headache [Unknown]
  - Gastritis [Unknown]
  - Coronavirus infection [Recovered/Resolved]
  - Malaise [Recovered/Resolved]
  - Syncope [Unknown]
  - Dysphagia [Recovered/Resolved]
  - Nausea [Unknown]
  - Rheumatoid arthritis [Unknown]
  - Headache [Recovered/Resolved]
  - Anosmia [Recovered/Resolved]
  - Diabetes mellitus [Unknown]
  - Blood pressure increased [Recovered/Resolved]
  - Asthenia [Recovered/Resolved]
  - Dyspnoea [Unknown]
  - Bursitis [Unknown]
  - Gastric dilatation [Unknown]
  - Immunodeficiency [Recovered/Resolved]
  - Blood pressure decreased [Recovered/Resolved]
  - Discomfort [Recovering/Resolving]
  - Palate injury [Recovering/Resolving]

NARRATIVE: CASE EVENT DATE: 20200414
